FAERS Safety Report 6150555-4 (Version None)
Quarter: 2009Q2

REPORT INFORMATION
  Report Type: 
  Country: None (occurrence: None)
  Receive Date: 20090409
  Receipt Date: 20090402
  Transmission Date: 20091009
  Serious: Yes (Hospitalization)
  Sender: FDA-Public Use
  Company Number: TH-TYCO HEALTHCARE/MALLINCKRODT-T200900797

PATIENT
  Sex: Female

DRUGS (1)
  1. OPTIRAY 300 [Suspect]
     Indication: UROGRAM
     Dosage: 50 ML, SINGLE
     Route: 042
     Dates: start: 20090130, end: 20090130

REACTIONS (3)
  - BRONCHOSPASM [None]
  - CHEST DISCOMFORT [None]
  - RASH [None]
